FAERS Safety Report 24709953 (Version 1)
Quarter: 2024Q4

REPORT INFORMATION
  Report Type: Report from Study
  Country: US (occurrence: US)
  Receive Date: 20241209
  Receipt Date: 20241209
  Transmission Date: 20250114
  Serious: Yes (Other)
  Sender: TEVA
  Company Number: US-TEVA-VS-3271944

PATIENT
  Age: 76 Year
  Sex: Male

DRUGS (1)
  1. AUSTEDO [Suspect]
     Active Substance: DEUTETRABENAZINE
     Indication: Tardive dyskinesia
     Dosage: 1 TABLE IN THE MORNING
     Route: 065

REACTIONS (2)
  - Parkinson^s disease [Not Recovered/Not Resolved]
  - Product use issue [Unknown]
